FAERS Safety Report 12320077 (Version 2)
Quarter: 2020Q1

REPORT INFORMATION
  Report Type: Spontaneous
  Country: US (occurrence: US)
  Receive Date: 20160429
  Receipt Date: 20200213
  Transmission Date: 20200409
  Serious: Yes (Hospitalization)
  Sender: FDA-Public Use
  Company Number: US-BAUSCH-BL-2016-009434

PATIENT
  Age: 46 Year
  Sex: Female
  Weight: 62.6 kg

DRUGS (15)
  1. DURAGESIC [Suspect]
     Active Substance: FENTANYL
     Indication: PRODUCT USED FOR UNKNOWN INDICATION
     Dosage: 100 MCG/HR TRANSDERMAL PATCH (1 PATCH EVERY 72 HOURS)
     Route: 062
     Dates: start: 20151001, end: 20151007
  2. RIVAROXABAN [Concomitant]
     Active Substance: RIVAROXABAN
     Indication: PRODUCT USED FOR UNKNOWN INDICATION
     Route: 065
  3. ATIVAN [Suspect]
     Active Substance: LORAZEPAM
     Indication: VOMITING
  4. DILAUDID [Suspect]
     Active Substance: HYDROMORPHONE HYDROCHLORIDE
     Dosage: 2 MG/ML INJECTION 1 MG EVERY 2 HOURS WHEN NECESSARY (PRN)
     Route: 042
     Dates: start: 20151001, end: 20151006
  5. ROXICODONE [Suspect]
     Active Substance: OXYCODONE HYDROCHLORIDE
     Indication: BREAKTHROUGH PAIN
     Dosage: 15 MG EVERY 4 HOURS WHEN NECESSARY (PRN)
     Route: 048
     Dates: start: 20151001, end: 20151007
  6. DURAGESIC [Suspect]
     Active Substance: FENTANYL
     Dosage: 50 MCG/HR TRANSDERMAL PATCH (1 PATCH EVERY 72 HOURS)
     Route: 062
     Dates: start: 20151001, end: 20151007
  7. SUBLIMAZE [Suspect]
     Active Substance: FENTANYL CITRATE
     Indication: PRODUCT USED FOR UNKNOWN INDICATION
     Dosage: 50 MCG/ML EVERY 3 MINUTES WHEN NECESSARY (PRN)
     Route: 042
     Dates: start: 20151005, end: 20151005
  8. SUBLIMAZE [Suspect]
     Active Substance: FENTANYL CITRATE
     Dosage: 50 MCG/ML ONCE
     Route: 042
     Dates: start: 20151005, end: 20151005
  9. FLEXERIL [Suspect]
     Active Substance: CYCLOBENZAPRINE HYDROCHLORIDE
     Indication: MUSCLE SPASMS
     Route: 048
     Dates: start: 20150930, end: 20151007
  10. ATIVAN [Suspect]
     Active Substance: LORAZEPAM
     Indication: NAUSEA
     Dosage: 1 MG EVERY 6 HOURS WHEN NECESSARY (PRN)
     Route: 048
     Dates: start: 20150930, end: 20151007
  11. PHENYLEPHRINE [Suspect]
     Active Substance: PHENYLEPHRINE HYDROCHLORIDE
     Indication: PRODUCT USED FOR UNKNOWN INDICATION
     Dosage: 1 MG/10 ML (100 MCG/ML) ONCE
     Route: 065
     Dates: start: 20151005, end: 20151005
  12. XANAX [Suspect]
     Active Substance: ALPRAZOLAM
     Indication: PRODUCT USED FOR UNKNOWN INDICATION
     Dosage: 1 MG, WHEN NECESSARY (PRN) TID
     Route: 048
     Dates: start: 20151004, end: 20151006
  13. VERSED [Suspect]
     Active Substance: MIDAZOLAM HYDROCHLORIDE
     Indication: PRODUCT USED FOR UNKNOWN INDICATION
     Route: 042
     Dates: start: 20151005, end: 20151005
  14. DIPRIVAN [Suspect]
     Active Substance: PROPOFOL
     Indication: PRODUCT USED FOR UNKNOWN INDICATION
     Route: 042
     Dates: start: 20151005, end: 20151005
  15. DILAUDID [Suspect]
     Active Substance: HYDROMORPHONE HYDROCHLORIDE
     Indication: PAIN
     Dosage: 1 MG/ML INJECTION 0.5 MG EVERY 5 MINUTES WHEN NECESSARY (PRN)
     Route: 042
     Dates: start: 20151005, end: 20151005

REACTIONS (2)
  - Embolism [Recovered/Resolved]
  - Encephalopathy [Unknown]

NARRATIVE: CASE EVENT DATE: 201510
